FAERS Safety Report 21372173 (Version 2)
Quarter: 2022Q3

REPORT INFORMATION
  Report Type: Report from Study
  Country: FR (occurrence: FR)
  Receive Date: 20220923
  Receipt Date: 20220928
  Transmission Date: 20221026
  Serious: Yes (Other)
  Sender: FDA-Public Use
  Company Number: FR-GILEAD-2022-0594956

PATIENT
  Sex: Female
  Weight: 75 kg

DRUGS (5)
  1. SACITUZUMAB GOVITECAN [Suspect]
     Active Substance: SACITUZUMAB GOVITECAN
     Indication: Breast cancer metastatic
     Dosage: 10 MG/KG, CYCLE 1, DAY 1,8
     Route: 042
     Dates: start: 20220513, end: 20220520
  2. SACITUZUMAB GOVITECAN [Suspect]
     Active Substance: SACITUZUMAB GOVITECAN
     Dosage: 10 MG/KG, CYCLE 2 DAY 1,8
     Route: 042
     Dates: start: 20220603, end: 20220610
  3. SACITUZUMAB GOVITECAN [Suspect]
     Active Substance: SACITUZUMAB GOVITECAN
     Dosage: 10 MG/KG, CYCLE 3 DAY 1,8
     Route: 042
     Dates: start: 20220624, end: 20220701
  4. SACITUZUMAB GOVITECAN [Suspect]
     Active Substance: SACITUZUMAB GOVITECAN
     Dosage: 10 MG/KG, CYCLE 4 DAY 1,8
     Route: 042
     Dates: start: 20220715, end: 20220722
  5. SACITUZUMAB GOVITECAN [Suspect]
     Active Substance: SACITUZUMAB GOVITECAN
     Dosage: 10 MG/KG, CYCLE 5 DAY 1,8
     Route: 042
     Dates: start: 20220819, end: 20220826

REACTIONS (4)
  - Pulmonary sepsis [Unknown]
  - Decreased appetite [Unknown]
  - General physical condition abnormal [Unknown]
  - Inappropriate schedule of product administration [Unknown]
